FAERS Safety Report 4693873-9 (Version None)
Quarter: 2005Q2

REPORT INFORMATION
  Report Type: 
  Country: None (occurrence: None)
  Receive Date: 20050617
  Receipt Date: 20030127
  Transmission Date: 20051028
  Serious: Yes (Disabling)
  Sender: FDA-Public Use
  Company Number: US-MERCK-0301USA02574

PATIENT
  Age: 45 Year
  Sex: Male
  Weight: 61 kg

DRUGS (3)
  1. ZOCOR [Suspect]
     Indication: PERIPHERAL VASCULAR DISORDER
     Route: 048
     Dates: start: 20050321, end: 20050420
  2. ZOCOR [Suspect]
     Route: 048
  3. COUMADIN [Concomitant]
     Indication: PERIPHERAL VASCULAR DISORDER
     Route: 065
     Dates: start: 20000101

REACTIONS (3)
  - MEDICATION ERROR [None]
  - MUSCULOSKELETAL STIFFNESS [None]
  - PALPITATIONS [None]
